FAERS Safety Report 12789623 (Version 1)
Quarter: 2016Q3

REPORT INFORMATION
  Report Type: Spontaneous
  Country: US (occurrence: US)
  Receive Date: 20160928
  Receipt Date: 20160928
  Transmission Date: 20161109
  Serious: Yes (Hospitalization, Other)
  Sender: FDA-Public Use
  Company Number: US-SHIRE-US201612817

PATIENT
  Sex: Female

DRUGS (1)
  1. PENTASA [Suspect]
     Active Substance: MESALAMINE
     Indication: CROHN^S DISEASE
     Dosage: 500 MG, 4X/DAY:QID
     Route: 048
     Dates: start: 201412, end: 20160909

REACTIONS (6)
  - Colonic abscess [Unknown]
  - Unevaluable event [Recovered/Resolved]
  - Cardiac disorder [Unknown]
  - Product use issue [Recovered/Resolved]
  - Intestinal fistula [Unknown]
  - Flatulence [Not Recovered/Not Resolved]

NARRATIVE: CASE EVENT DATE: 201412
